APPROVED DRUG PRODUCT: ARANELLE
Active Ingredient: ETHINYL ESTRADIOL; NORETHINDRONE
Strength: 0.035MG,0.035MG,0.035MG;0.5MG,1MG,0.5MG
Dosage Form/Route: TABLET;ORAL-28
Application: A076783 | Product #001 | TE Code: AB
Applicant: BARR LABORATORIES INC
Approved: Sep 29, 2004 | RLD: No | RS: No | Type: RX